FAERS Safety Report 17197181 (Version 3)
Quarter: 2020Q1

REPORT INFORMATION
  Report Type: Report from Study
  Country: US (occurrence: US)
  Receive Date: 20191224
  Receipt Date: 20200311
  Transmission Date: 20200409
  Serious: Yes (Other)
  Sender: FDA-Public Use
  Company Number: NVSC2019US077364

PATIENT
  Sex: Male

DRUGS (2)
  1. ENTRESTO [Suspect]
     Active Substance: SACUBITRIL\VALSARTAN
     Dosage: 1 DF (49 MG OF SACUBITRIL/ 51 MG OF VALSARTAN), BID
     Route: 048
  2. ENTRESTO [Suspect]
     Active Substance: SACUBITRIL\VALSARTAN
     Indication: PRODUCT USED FOR UNKNOWN INDICATION
     Dosage: 1 DF (24 MG OF SACUBITRIL/ 26 MG OF VALSARTAN), BID
     Route: 065
     Dates: start: 201910

REACTIONS (4)
  - Musculoskeletal discomfort [Recovering/Resolving]
  - Memory impairment [Unknown]
  - Therapeutic response unexpected [Recovering/Resolving]
  - Myocardial infarction [Unknown]
